FAERS Safety Report 13214418 (Version 1)
Quarter: 2017Q1

REPORT INFORMATION
  Report Type: Spontaneous
  Country: US (occurrence: US)
  Receive Date: 20170209
  Receipt Date: 20170209
  Transmission Date: 20170428
  Serious: No
  Sender: FDA-Public Use
  Company Number: US-ALLERGAN-1670031US

PATIENT
  Age: 61 Year
  Sex: Female
  Weight: 59.86 kg

DRUGS (3)
  1. ESTRADIOL. [Concomitant]
     Active Substance: ESTRADIOL
     Indication: HORMONE REPLACEMENT THERAPY
     Dosage: UNK
     Route: 061
  2. BOTOX [Suspect]
     Active Substance: ONABOTULINUMTOXINA
     Dosage: UNK
     Dates: start: 201603, end: 201603
  3. BOTOX [Suspect]
     Active Substance: ONABOTULINUMTOXINA
     Indication: TORTICOLLIS
     Dosage: UNK, SINGLE
     Route: 030
     Dates: start: 201606, end: 201606

REACTIONS (10)
  - Feeling abnormal [Recovered/Resolved]
  - Apathy [Recovered/Resolved]
  - Influenza like illness [Recovered/Resolved]
  - Malaise [Recovered/Resolved]
  - Nausea [Recovered/Resolved]
  - Headache [Recovered/Resolved]
  - Heterophoria [Not Recovered/Not Resolved]
  - Drug ineffective [Unknown]
  - Tremor [Not Recovered/Not Resolved]
  - Pain [Recovered/Resolved]
